FAERS Safety Report 22289461 (Version 1)
Quarter: 2023Q2

REPORT INFORMATION
  Report Type: Spontaneous
  Country: US (occurrence: None)
  Receive Date: 20230504
  Receipt Date: 20230504
  Transmission Date: 20230721
  Serious: Yes (Other)
  Sender: FDA-Public Use
  Company Number: None

PATIENT
  Age: 64 Year
  Sex: Female
  Weight: 81.45 kg

DRUGS (3)
  1. HIBICLENS [Suspect]
     Active Substance: CHLORHEXIDINE GLUCONATE
     Indication: Preoperative care
     Dates: start: 20230419, end: 20230420
  2. generic ckaritin [Concomitant]
  3. generic decongestant [Concomitant]

REACTIONS (1)
  - Rash macular [None]

NARRATIVE: CASE EVENT DATE: 20230422
